FAERS Safety Report 8171660-7 (Version None)
Quarter: 2012Q1

REPORT INFORMATION
  Report Type: 
  Country: None (occurrence: None)
  Receive Date: 20120228
  Receipt Date: 20120216
  Transmission Date: 20120608
  Serious: Yes (Death, Hospitalization)
  Sender: FDA-Public Use
  Company Number: DK-PURDUE-GBR-2012-0009834

PATIENT
  Sex: Female

DRUGS (18)
  1. PULMICORT-100 [Concomitant]
     Dosage: 200 MG, QID
  2. TERBASMIN                          /00199201/ [Concomitant]
     Dosage: UNK
  3. ACETAMINOPHEN [Concomitant]
     Dosage: 500 MG, PRN
  4. DIDRONEL [Concomitant]
     Dosage: 400 MG, SEE TEXT
  5. ESTRADIOL [Concomitant]
     Dosage: 2 MG, DAILY
  6. FUROSEMIDE [Concomitant]
     Dosage: 90 MG, DAILY
  7. MORPHINE [Suspect]
     Indication: PAIN
     Dosage: 150 MG, DAILY
     Route: 048
  8. LYRICA [Suspect]
     Indication: PAIN
     Dosage: 75 MG, SINGLE
     Route: 048
     Dates: start: 20050817, end: 20050817
  9. VILAN                              /00118301/ [Concomitant]
     Dosage: UNK UNK, PRN
  10. MYONIL [Concomitant]
     Dosage: UNK UNK, BID
  11. NITROMEX [Concomitant]
     Dosage: UNK UNK, PRN
  12. SEREVENT [Concomitant]
     Dosage: UNK MG, BID
  13. PREDNISOLONE [Concomitant]
     Dosage: UNK
  14. PACISYN [Concomitant]
     Dosage: 2.5 MG, SEE TEXT
  15. POTASSIUM CHLORIDE [Concomitant]
     Dosage: 2250 MG, DAILY
  16. MONTELUKAST [Concomitant]
     Dosage: UNK
  17. CALCIUM [Concomitant]
     Dosage: UNK, TID
  18. OMEPRAZOLE [Concomitant]
     Dosage: UNK UNK, PRN

REACTIONS (8)
  - NAUSEA [None]
  - VOMITING [None]
  - DIZZINESS [None]
  - DRY MOUTH [None]
  - SOMNOLENCE [None]
  - DEATH [None]
  - HEADACHE [None]
  - CHANGE OF BOWEL HABIT [None]
